FAERS Safety Report 26210645 (Version 1)
Quarter: 2025Q4

REPORT INFORMATION
  Report Type: Spontaneous
  Country: US (occurrence: US)
  Receive Date: 20251230
  Receipt Date: 20251230
  Transmission Date: 20260118
  Serious: No
  Sender: SANOFI AVENTIS
  Company Number: US-SA-2025SA387861

PATIENT
  Sex: Female

DRUGS (4)
  1. DUPIXENT [Suspect]
     Active Substance: DUPILUMAB
     Indication: Dermatitis allergic
     Dosage: 300 MG, QOW
     Route: 058
     Dates: start: 20220706
  2. BYDUREON [Concomitant]
     Active Substance: EXENATIDE
  3. CELEBREX [Concomitant]
     Active Substance: CELECOXIB
  4. PEPCID [Concomitant]
     Active Substance: FAMOTIDINE

REACTIONS (3)
  - Dermatitis allergic [Unknown]
  - Condition aggravated [Unknown]
  - Product dose omission issue [Unknown]
